FAERS Safety Report 10072301 (Version 1)
Quarter: 2014Q2

REPORT INFORMATION
  Report Type: Spontaneous
  Country: US (occurrence: US)
  Receive Date: 20140411
  Receipt Date: 20140411
  Transmission Date: 20141212
  Serious: Yes (Other)
  Sender: FDA-Public Use
  Company Number: 2014SP001869

PATIENT
  Age: 66 Year
  Sex: Male

DRUGS (3)
  1. METHOTREXATE [Suspect]
     Indication: PRODUCT USED FOR UNKNOWN INDICATION
  2. ETANERCEPT [Suspect]
     Indication: PSORIATIC ARTHROPATHY
     Route: 065
     Dates: start: 20011001
  3. PREDNISONE [Concomitant]
     Indication: PRODUCT USED FOR UNKNOWN INDICATION

REACTIONS (7)
  - Psoriatic arthropathy [Not Recovered/Not Resolved]
  - Pain [Recovered/Resolved]
  - Activities of daily living impaired [Recovered/Resolved]
  - Gastrointestinal disorder [Unknown]
  - Red blood cell sedimentation rate increased [Unknown]
  - Laboratory test abnormal [Unknown]
  - Fall [Unknown]
